FAERS Safety Report 6839116-9 (Version None)
Quarter: 2010Q2

REPORT INFORMATION
  Report Type: 
  Country: None (occurrence: None)
  Receive Date: 20100628
  Receipt Date: 20090810
  Transmission Date: 20101027
  Serious: Yes (Hospitalization)
  Sender: FDA-Public Use
  Company Number: 2009-06408

PATIENT
  Age: 82 Year
  Sex: Female

DRUGS (1)
  1. INFED [Suspect]
     Indication: IRON DEFICIENCY ANAEMIA
     Dosage: 5 MG ONLY, IV INFUSION, INTRAVENOUS
     Route: 042
     Dates: start: 20090727, end: 20090727

REACTIONS (2)
  - BLOOD PRESSURE IMMEASURABLE [None]
  - DIZZINESS [None]
